FAERS Safety Report 6689274-4 (Version None)
Quarter: 2010Q2

REPORT INFORMATION
  Report Type: 
  Country: None (occurrence: None)
  Receive Date: 20100416
  Receipt Date: 20100405
  Transmission Date: 20101027
  Serious: Yes (Disabling)
  Sender: FDA-Public Use
  Company Number: 2009AL003804

PATIENT
  Age: 70 Year
  Sex: Female
  Weight: 99.3377 kg

DRUGS (29)
  1. METOCLOPRAMIDE [Suspect]
     Indication: NAUSEA
     Dosage: 10 MG;QD;PO
     Route: 048
     Dates: start: 20060201, end: 20070601
  2. NIFEDIPINE [Concomitant]
  3. MIRALAX [Concomitant]
  4. AMANTADINE HCL [Concomitant]
  5. VITAMIN E [Concomitant]
  6. KLONOPIN [Concomitant]
  7. ATENOLOL [Concomitant]
  8. MICARDIS [Concomitant]
  9. FOLIC ACID [Concomitant]
  10. PLAQUENIL [Concomitant]
  11. PAXIL [Concomitant]
  12. LIBRAX [Concomitant]
  13. ASPIRIN [Concomitant]
  14. FISH OIL [Concomitant]
  15. VITAMIN B COMPLEX CAP [Concomitant]
  16. COLACE [Concomitant]
  17. LIBRIUM [Concomitant]
  18. OMEPRAZOLE [Concomitant]
  19. ENBREL [Concomitant]
  20. XANAX [Concomitant]
  21. PRILOSEC [Concomitant]
  22. DARVOCET [Concomitant]
  23. ADVIL [Concomitant]
  24. ADVAIR DISKUS 100/50 [Concomitant]
  25. ALBUTEROL [Concomitant]
  26. HUMIRA [Concomitant]
  27. SINGULAIR [Concomitant]
  28. METHOTREXATE [Concomitant]
  29. ARAVA [Concomitant]

REACTIONS (27)
  - ABDOMINAL PAIN [None]
  - ACTIVITIES OF DAILY LIVING IMPAIRED [None]
  - ANXIETY [None]
  - BRONCHITIS [None]
  - DEFORMITY [None]
  - DRUG INTOLERANCE [None]
  - DRY MOUTH [None]
  - DYSKINESIA [None]
  - ECONOMIC PROBLEM [None]
  - EMOTIONAL DISTRESS [None]
  - EXTRAPYRAMIDAL DISORDER [None]
  - HAEMOGLOBIN DECREASED [None]
  - INCORRECT DRUG ADMINISTRATION DURATION [None]
  - INJURY [None]
  - JOINT SWELLING [None]
  - LUMBAR RADICULOPATHY [None]
  - MENTAL DISORDER [None]
  - MOUTH ULCERATION [None]
  - NERVOUS SYSTEM DISORDER [None]
  - NEUROPATHY PERIPHERAL [None]
  - PAIN [None]
  - ROTATOR CUFF SYNDROME [None]
  - SKIN HYPERPIGMENTATION [None]
  - SPEECH DISORDER [None]
  - SYNOVITIS [None]
  - TARDIVE DYSKINESIA [None]
  - WHITE BLOOD CELL COUNT DECREASED [None]
